FAERS Safety Report 23714421 (Version 1)
Quarter: 2024Q2

REPORT INFORMATION
  Report Type: Spontaneous
  Country: US (occurrence: US)
  Receive Date: 20240406
  Receipt Date: 20240406
  Transmission Date: 20240716
  Serious: Yes (Other)
  Sender: FDA-Public Use
  Company Number: US-AUROBINDO-AUR-APL-2024-014588

PATIENT
  Age: 55 Year
  Sex: Female

DRUGS (8)
  1. BUPROPION [Interacting]
     Active Substance: BUPROPION
     Indication: Bipolar I disorder
     Dosage: 15MG/DAY
     Route: 065
  2. BUPROPION [Interacting]
     Active Substance: BUPROPION
     Dosage: 300MG/DAY
     Route: 065
  3. DEUTETRABENAZINE [Interacting]
     Active Substance: DEUTETRABENAZINE
     Indication: Bipolar I disorder
     Dosage: 12 MG/DAY
     Route: 065
  4. DEUTETRABENAZINE [Interacting]
     Active Substance: DEUTETRABENAZINE
     Dosage: 24 MG/DAY
     Route: 065
  5. CLOZAPINE [Suspect]
     Active Substance: CLOZAPINE
     Indication: Bipolar I disorder
     Dosage: UNK
     Route: 065
  6. LITHIUM [Suspect]
     Active Substance: LITHIUM
     Indication: Bipolar I disorder
     Dosage: 600 MILLIGRAM
     Route: 065
  7. LITHIUM [Suspect]
     Active Substance: LITHIUM
     Dosage: 900 MILLIGRAM
     Route: 065
  8. PROPRANOLOL [Concomitant]
     Active Substance: PROPRANOLOL HYDROCHLORIDE
     Indication: Product used for unknown indication
     Dosage: UNK
     Route: 065

REACTIONS (12)
  - Hyperprolactinaemia [Unknown]
  - Bradycardia [Recovered/Resolved]
  - Electrocardiogram QT prolonged [Unknown]
  - Drug interaction [Unknown]
  - Toxicity to various agents [Unknown]
  - Dizziness [Unknown]
  - Ataxia [Unknown]
  - Aphasia [Unknown]
  - Tremor [Unknown]
  - Dysarthria [Unknown]
  - Confusional state [Unknown]
  - Electrocardiogram T wave abnormal [Unknown]
